FAERS Safety Report 4424735-X (Version None)
Quarter: 2004Q3

REPORT INFORMATION
  Report Type: 
  Country: None (occurrence: None)
  Receive Date: 20040805
  Receipt Date: 20040727
  Transmission Date: 20050211
  Serious: Yes (Death, Hospitalization)
  Sender: FDA-Public Use
  Company Number: STA-AE-04-MTX-334

PATIENT
  Age: 52 Year
  Sex: Male

DRUGS (15)
  1. RHEUMATREX [Suspect]
     Indication: RHEUMATOID ARTHRITIS
     Dosage: 6 MG 1X PER 1 WK, ORAL
     Route: 048
     Dates: start: 20000512, end: 20001104
  2. RHEUMATREX [Suspect]
     Indication: RHEUMATOID ARTHRITIS
     Dosage: 8 MG 1X PER 1 WK, ORAL
     Route: 048
     Dates: start: 20001104, end: 20031119
  3. METHOTREXATE [Suspect]
     Indication: RHEUMATOID ARTHRITIS
     Dosage: 2.5 MG 1X PER 1 WK, ORAL
     Route: 048
     Dates: start: 20011001, end: 20031119
  4. REMICADE [Suspect]
     Dosage: 3 MG/KG, INTRAVENOUS
     Route: 042
     Dates: start: 20030905, end: 20030905
  5. REMICADE [Suspect]
     Dosage: INTRAVENOUS
     Route: 042
     Dates: start: 20030919, end: 20030919
  6. REMICADE [Suspect]
     Dosage: INTRAVENOUS
     Route: 042
     Dates: start: 20031017, end: 20031017
  7. PREDNISOLONE [Concomitant]
  8. PENICILLAMINE [Concomitant]
  9. AZULFIDINE [Concomitant]
  10. RIMATIL (BUCILLAMINE) [Concomitant]
  11. FOLIC ACID [Concomitant]
  12. NABOAL - SLOW RELEASE (DICLOFENAC SODIUM) [Concomitant]
  13. VOLTAREN [Concomitant]
  14. ADONA (CARBAZOCHROME SODIUM SULFONATE) [Concomitant]
  15. TIZANIDINE HCL [Concomitant]

REACTIONS (6)
  - ANOREXIA [None]
  - CARDIAC FAILURE [None]
  - HAEMOLYTIC ANAEMIA [None]
  - HYPONATRAEMIA [None]
  - LOSS OF CONSCIOUSNESS [None]
  - WEIGHT DECREASED [None]
